FAERS Safety Report 14310453 (Version 1)
Quarter: 2017Q4

REPORT INFORMATION
  Report Type: Spontaneous
  Country: US (occurrence: US)
  Receive Date: 20171220
  Receipt Date: 20171220
  Transmission Date: 20180321
  Serious: Yes (Disabling)
  Sender: FDA-Public Use
  Company Number: None

PATIENT
  Age: 51 Year
  Sex: Female
  Weight: 126 kg

DRUGS (13)
  1. BYDUREON [Suspect]
     Active Substance: EXENATIDE
     Indication: DIABETES MELLITUS
     Dosage: ?          QUANTITY:1 INJECTION(S);OTHER FREQUENCY:WEEKLY;?
     Route: 058
     Dates: start: 20171211, end: 20171219
  2. VITAMIN D3 [Concomitant]
     Active Substance: CHOLECALCIFEROL
  3. BIOTIN [Concomitant]
     Active Substance: BIOTIN
  4. ASA [Concomitant]
     Active Substance: ASPIRIN
  5. VITAMIN B COMPLEX [Concomitant]
     Active Substance: CYANOCOBALAMIN\DEXPANTHENOL\NIACINAMIDE\PYRIDOXINE HYDROCHLORIDE\RIBOFLAVIN 5^-PHOSPHATE SODIUM\THIAMINE HYDROCHLORIDE\VITAMIN B COMPLEX
  6. FIBER CAPS [Concomitant]
     Active Substance: CALCIUM POLYCARBOPHIL
  7. METFORMIN [Concomitant]
     Active Substance: METFORMIN HYDROCHLORIDE
  8. SPIRONOLACTONE. [Concomitant]
     Active Substance: SPIRONOLACTONE
  9. LISINOPRIL. [Concomitant]
     Active Substance: LISINOPRIL
  10. ATENOLOL. [Concomitant]
     Active Substance: ATENOLOL
  11. MVI [Concomitant]
     Active Substance: VITAMINS
  12. COQ10 [Concomitant]
     Active Substance: UBIDECARENONE
  13. ARMOUR THYROID [Concomitant]
     Active Substance: THYROID, PORCINE

REACTIONS (3)
  - Injection site pruritus [None]
  - Injection site erythema [None]
  - Injection site urticaria [None]

NARRATIVE: CASE EVENT DATE: 20171219
